FAERS Safety Report 5598064-5 (Version None)
Quarter: 2008Q1

REPORT INFORMATION
  Report Type: 
  Country: None (occurrence: None)
  Receive Date: 20080122
  Receipt Date: 20080110
  Transmission Date: 20080703
  Serious: Yes (Hospitalization, Other)
  Sender: FDA-Public Use
  Company Number: US-ELI_LILLY_AND_COMPANY-US200801000477

PATIENT
  Sex: Female

DRUGS (3)
  1. FORTEO [Suspect]
     Indication: OSTEOPOROSIS
     Dates: end: 20071229
  2. FORTEO [Suspect]
     Dates: start: 20080102
  3. TOPROL-XL [Concomitant]
     Indication: CARDIAC DISORDER

REACTIONS (1)
  - AORTIC ANEURYSM [None]
